FAERS Safety Report 5195530-1 (Version None)
Quarter: 2006Q4

REPORT INFORMATION
  Report Type: 
  Country: None (occurrence: None)
  Receive Date: 20061222
  Receipt Date: 20061222
  Transmission Date: 20070319
  Serious: Yes (Life-Threatening, Hospitalization)
  Sender: FDA-Public Use
  Company Number: None

PATIENT
  Age: 64 Year
  Sex: Male
  Weight: 105.6881 kg

DRUGS (1)
  1. LISINOPRIL [Suspect]
     Indication: HYPERTENSION
     Dosage: UNKNOWN   UNKNOWN   UNKNOWN
     Dates: start: 19940101, end: 20060801

REACTIONS (6)
  - CEREBROVASCULAR ACCIDENT [None]
  - COUGH [None]
  - NASOPHARYNGEAL DISORDER [None]
  - SPEECH DISORDER [None]
  - SWOLLEN TONGUE [None]
  - TRANSIENT ISCHAEMIC ATTACK [None]
